FAERS Safety Report 16471386 (Version 1)
Quarter: 2019Q2

REPORT INFORMATION
  Report Type: Report from Study
  Country: BR (occurrence: BR)
  Receive Date: 20190624
  Receipt Date: 20190624
  Transmission Date: 20190711
  Serious: Yes (Other)
  Sender: FDA-Public Use
  Company Number: BR-SHIRE-BR201919882

PATIENT

DRUGS (4)
  1. HYQVIA [Suspect]
     Active Substance: HUMAN IMMUNOGLOBULIN G\HYALURONIDASE RECOMBINANT HUMAN
     Indication: HYPERGAMMAGLOBULINAEMIA
     Dosage: EVERY 4 WK
     Route: 058
     Dates: start: 20181011
  2. IMUNOGLOBULIN [IMMUNOGLOBULIN HUMAN NORMAL] [Concomitant]
     Indication: PRODUCT USED FOR UNKNOWN INDICATION
  3. FLEBOGAMMA [Concomitant]
     Active Substance: HUMAN IMMUNOGLOBULIN G
     Indication: PRODUCT USED FOR UNKNOWN INDICATION
  4. ENDOBULIN [Concomitant]
     Active Substance: HUMAN IMMUNOGLOBULIN G
     Indication: PRODUCT USED FOR UNKNOWN INDICATION

REACTIONS (7)
  - Injection site haematoma [Unknown]
  - Injection site discomfort [Unknown]
  - Crying [Unknown]
  - Burning sensation [Unknown]
  - Bedridden [Unknown]
  - Moaning [Unknown]
  - Off label use [Unknown]
